FAERS Safety Report 12918058 (Version 1)
Quarter: 2016Q4

REPORT INFORMATION
  Report Type: Other
  Country: ES (occurrence: ES)
  Receive Date: 20161107
  Receipt Date: 20161107
  Transmission Date: 20170207
  Serious: Yes (Hospitalization, Other)
  Sender: FDA-Public Use
  Company Number: ES-ACTELION-A-CH2016-144636

PATIENT
  Age: 57 Year
  Sex: Female

DRUGS (3)
  1. BOSENTAN. [Suspect]
     Active Substance: BOSENTAN
     Indication: PERIPHERAL ISCHAEMIA
     Dosage: UNK
     Route: 048
     Dates: start: 201112
  2. ACENOCOUMAROL [Concomitant]
     Active Substance: ACENOCOUMAROL
     Indication: PRODUCT USED FOR UNKNOWN INDICATION
  3. ASPIRIN. [Concomitant]
     Active Substance: ASPIRIN
     Indication: PRODUCT USED FOR UNKNOWN INDICATION

REACTIONS (6)
  - Pain in extremity [Recovering/Resolving]
  - Stem cell transplant [Unknown]
  - Concomitant disease aggravated [Recovering/Resolving]
  - Peripheral ischaemia [Recovering/Resolving]
  - Motor dysfunction [Recovering/Resolving]
  - Postoperative wound complication [Recovering/Resolving]
